FAERS Safety Report 9797265 (Version 1)
Quarter: 2014Q1

REPORT INFORMATION
  Report Type: Spontaneous
  Country: US (occurrence: US)
  Receive Date: 20140106
  Receipt Date: 20140106
  Transmission Date: 20141002
  Serious: Yes (Death)
  Sender: FDA-Public Use
  Company Number: US-ROCHE-1329331

PATIENT
  Sex: Female

DRUGS (6)
  1. XELODA [Suspect]
     Indication: BREAST CANCER
     Dosage: 3 TABS IN AM, 2 TABS IN PM
     Route: 048
     Dates: start: 20131104, end: 20131214
  2. FLUCONAZOLE [Concomitant]
     Dosage: OR PRN
     Route: 048
  3. DIAZEPAM [Concomitant]
     Route: 048
  4. MECLIZINE [Concomitant]
     Route: 048
  5. DEXAMETHASONE [Concomitant]
     Route: 048
  6. NYSTATIN [Concomitant]
     Dosage: 1T 4 TIMES DAILY
     Route: 048

REACTIONS (1)
  - Disease progression [Fatal]
